FAERS Safety Report 8261903-3 (Version None)
Quarter: 2012Q1

REPORT INFORMATION
  Report Type: 
  Country: None (occurrence: None)
  Receive Date: 20120327
  Receipt Date: 20090225
  Transmission Date: 20120608
  Serious: Yes (Other)
  Sender: FDA-Public Use
  Company Number: PHEH2009US02067

PATIENT
  Sex: Female

DRUGS (1)
  1. GLEEVEC [Suspect]
     Dosage: 100 MG, QID
     Dates: start: 20080601

REACTIONS (5)
  - HAEMORRHAGE [None]
  - MUSCLE SPASMS [None]
  - HYPERTENSION [None]
  - MUSCLE FATIGUE [None]
  - PAIN [None]
